FAERS Safety Report 15789988 (Version 1)
Quarter: 2018Q4

REPORT INFORMATION
  Report Type: Spontaneous
  Country: US (occurrence: US)
  Receive Date: 20181213
  Receipt Date: 20181213
  Transmission Date: 20190205
  Serious: No
  Sender: FDA-Public Use
  Company Number: None

PATIENT
  Age: 37 Year
  Sex: Male

DRUGS (1)
  1. COSENTYX [Suspect]
     Active Substance: SECUKINUMAB
     Indication: PSORIATIC ARTHROPATHY
     Dates: start: 20180715

REACTIONS (5)
  - Pain in extremity [None]
  - Pain [None]
  - Ear infection [None]
  - Fungal infection [None]
  - Arthritis [None]

NARRATIVE: CASE EVENT DATE: 20181210
